FAERS Safety Report 16968344 (Version 1)
Quarter: 2019Q4

REPORT INFORMATION
  Report Type: Spontaneous
  Country: IT (occurrence: IT)
  Receive Date: 20191028
  Receipt Date: 20191028
  Transmission Date: 20200122
  Serious: Yes (Other)
  Sender: FDA-Public Use
  Company Number: IT-BAXTER-2019BAX020049

PATIENT
  Age: 45 Year
  Sex: Male

DRUGS (11)
  1. THALIDOMIDE [Suspect]
     Active Substance: THALIDOMIDE
     Indication: PLASMA CELL MYELOMA
     Dosage: ADMINISTERED ON DAYS 1-21 DAYS IN A 21-DAY CYCLE. RECEIVED 3 CYCLES
     Route: 065
  2. CARFILZOMIB [Concomitant]
     Active Substance: CARFILZOMIB
     Indication: PLASMA CELL MYELOMA
     Dosage: ADMINISTERED ON DAYS 1, 2, 8, 9, 15 AND 16 IN A 28-DAY CYCLE
     Route: 042
  3. ZOLEDRONIC ACID [Suspect]
     Active Substance: ZOLEDRONIC ACID
     Indication: PLASMA CELL MYELOMA
     Dosage: RECEIVED 3 CYCLES.
     Route: 041
  4. ETOPOSIDE. [Suspect]
     Active Substance: ETOPOSIDE
     Indication: PLASMA CELL MYELOMA
     Dosage: 4 DAYS OF 40  MG/MQ/DAY, TWO 28-DAY CYCLES (CONTINUOUS INFUSION OVER 24 HOURS)
     Route: 041
  5. CISPLATIN. [Suspect]
     Active Substance: CISPLATIN
     Indication: PLASMA CELL MYELOMA
     Dosage: 4 DAYS OF 15 MG/MQ/DAY, TWO 28-DAY CYCLES
     Route: 065
  6. DEXAMETHASONE. [Suspect]
     Active Substance: DEXAMETHASONE
     Indication: PLASMA CELL MYELOMA
     Dosage: 40 MG/DAY, ON DAYS 1-48
     Route: 042
  7. DEXAMETHASONE. [Suspect]
     Active Substance: DEXAMETHASONE
     Dosage: AS A PART OF VTD REGIMEN: ADMINISTERED ON DAYS 1, 4, 8, 11 IN A 21-DAY CYCLE. RECEIVED 3 CYCLES
     Route: 048
  8. BORTEZOMIB. [Suspect]
     Active Substance: BORTEZOMIB
     Indication: PLASMA CELL MYELOMA
     Dosage: ADMINISTERED BIWEEKLY ON DAYS 1, 4, 8, 11 IN A 21-DAY CYCLE. RECEIVED 3 CYCLES
     Route: 058
  9. LENALIDOMIDE [Concomitant]
     Active Substance: LENALIDOMIDE
     Indication: PLASMA CELL MYELOMA
     Dosage: ADMINISTERED ON DAYS 1-21 IN A 28-DAY CYCLE.
     Route: 048
  10. ENDOXAN BAXTER [Suspect]
     Active Substance: CYCLOPHOSPHAMIDE
     Indication: PLASMA CELL MYELOMA
     Dosage: 4 DAYS OF 400 MG/MQ/DAY, TWO 28-DAY CYCLES
     Route: 065
  11. GRANULOCYTE COLONY-STIMULATING FACTOR [Concomitant]
     Active Substance: GRANULOCYTE COLONY-STIMULATING FACTOR NOS
     Indication: PRODUCT USED FOR UNKNOWN INDICATION
     Dosage: FROM DAY +5
     Route: 065

REACTIONS (3)
  - Thrombocytopenia [Recovered/Resolved]
  - Treatment failure [Unknown]
  - Neutropenia [Recovered/Resolved]
